FAERS Safety Report 14091825 (Version 1)
Quarter: 2017Q4

REPORT INFORMATION
  Report Type: Spontaneous
  Country: US (occurrence: US)
  Receive Date: 20171013
  Receipt Date: 20171013
  Transmission Date: 20180321
  Serious: No
  Sender: FDA-Public Use
  Company Number: None

PATIENT
  Sex: Female

DRUGS (1)
  1. LOSARTAN. [Suspect]
     Active Substance: LOSARTAN
     Route: 048

REACTIONS (6)
  - Dizziness [None]
  - Product substitution issue [None]
  - Malaise [None]
  - Headache [None]
  - Nausea [None]
  - Blood pressure diastolic decreased [None]
